FAERS Safety Report 24995543 (Version 4)
Quarter: 2025Q2

REPORT INFORMATION
  Report Type: Spontaneous
  Country: JP (occurrence: JP)
  Receive Date: 20250221
  Receipt Date: 20250603
  Transmission Date: 20250716
  Serious: Yes (Death, Other)
  Sender: PFIZER
  Company Number: JP-PFIZER INC-PV202500021493

PATIENT
  Age: 9 Year
  Sex: Male

DRUGS (1)
  1. SIROLIMUS [Suspect]
     Active Substance: SIROLIMUS
     Indication: Haemangioma
     Route: 048
     Dates: start: 202408, end: 202502

REACTIONS (3)
  - Severe invasive streptococcal infection [Fatal]
  - Loss of consciousness [Unknown]
  - Cardiac arrest [Unknown]

NARRATIVE: CASE EVENT DATE: 20250201
